FAERS Safety Report 7243024-1 (Version None)
Quarter: 2011Q1

REPORT INFORMATION
  Report Type: 
  Country: None (occurrence: None)
  Receive Date: 20110125
  Receipt Date: 20100927
  Transmission Date: 20110831
  Serious: No
  Sender: FDA-Public Use
  Company Number: US-AMGEN-KDL441246

PATIENT
  Sex: Female

DRUGS (2)
  1. INFLUENZA VACCINE [Concomitant]
     Dosage: UNK UNK, UNK
     Dates: start: 20100907, end: 20100907
  2. PROLIA [Suspect]
     Indication: OSTEOPOROSIS POSTMENOPAUSAL
     Dosage: UNK UNK, UNK
     Dates: start: 20100813

REACTIONS (3)
  - ABDOMINAL DISTENSION [None]
  - URINARY RETENTION [None]
  - POLLAKIURIA [None]
